FAERS Safety Report 26172783 (Version 1)
Quarter: 2025Q4

REPORT INFORMATION
  Report Type: Spontaneous
  Country: JP (occurrence: JP)
  Receive Date: 20251218
  Receipt Date: 20251218
  Transmission Date: 20260117
  Serious: Yes (Other)
  Sender: BRISTOL-MYERS SQUIBB COMPANY
  Company Number: JP-TAKEDA-2025TJP012684

PATIENT
  Age: 8 Decade
  Sex: Male

DRUGS (2)
  1. OPDIVO [Suspect]
     Active Substance: NIVOLUMAB
     Indication: Renal cancer
     Dosage: 240 MILLIGRAM
     Route: 041
  2. CABOMETYX [Suspect]
     Active Substance: CABOZANTINIB S-MALATE
     Indication: Renal cancer
     Dosage: UNK
     Route: 048

REACTIONS (2)
  - Nephrotic syndrome [Recovered/Resolved]
  - Eastern Cooperative Oncology Group performance status worsened [Not Recovered/Not Resolved]
